FAERS Safety Report 5622866-X (Version None)
Quarter: 2008Q1

REPORT INFORMATION
  Report Type: 
  Country: None (occurrence: None)
  Receive Date: 20080212
  Receipt Date: 20080207
  Transmission Date: 20080703
  Serious: Yes (Other)
  Sender: FDA-Public Use
  Company Number: US-WYE-H02518208

PATIENT
  Sex: Male

DRUGS (6)
  1. EFFEXOR XR [Suspect]
     Dosage: UNKNOWN
     Route: 065
  2. EFFEXOR XR [Suspect]
     Dosage: ^TAPERED HIS DOSE^
     Route: 065
  3. EFFEXOR XR [Suspect]
     Route: 065
  4. EFFEXOR XR [Suspect]
     Dosage: ^OPENED CAPSULES TO CREATE LOWER DOSE BY SPEARATING THE SPHEROIDS^
     Route: 065
  5. VENLAFAXINE HYDROCHLORIDE [Suspect]
     Dosage: UNKNOWN
     Route: 065
  6. VENLAFAXINE HYDROCHLORIDE [Suspect]
     Dosage: ^DIVIDED TO CREATE A LOWER DOSE^
     Route: 065

REACTIONS (6)
  - CRYING [None]
  - DRUG WITHDRAWAL SYNDROME [None]
  - NONSPECIFIC REACTION [None]
  - PARAESTHESIA [None]
  - SUICIDAL IDEATION [None]
  - SUICIDE ATTEMPT [None]
